FAERS Safety Report 9015834 (Version 1)
Quarter: 2012Q4

REPORT INFORMATION
  Report Type: Spontaneous
  Country: US (occurrence: None)
  Receive Date: 20121231
  Receipt Date: 20121231
  Transmission Date: 20130627
  Serious: Yes (Other)
  Sender: FDA-Public Use
  Company Number: JPI-P-027951

PATIENT
  Age: 65 Year
  Sex: Female

DRUGS (12)
  1. XYREM (500 MILLIGRAM/MILLILITERS, SOLUTION) (SODIUM OXYBATE) [Suspect]
     Indication: NARCOLEPSY
     Route: 048
     Dates: start: 201206
  2. XYREM (500 MILLIGRAM/MILLILITERS, SOLUTION) (SODIUM OXYBATE) [Suspect]
     Indication: EXCESSIVE DAYTIME SLEEPINESS
     Route: 048
     Dates: start: 201206
  3. XYREM (500 MILLIGRAM/MILLILITERS, SOLUTION) (SODIUM OXYBATE) [Suspect]
     Indication: NARCOLEPSY
     Dosage: 9 gm (4.5 gm), 2 in 1 d), oral
     Route: 048
  4. XYREM (500 MILLIGRAM/MILLILITERS, SOLUTION) (SODIUM OXYBATE) [Suspect]
     Indication: EXCESSIVE DAYTIME SLEEPINESS
     Dosage: 9 gm (4.5 gm), 2 in 1 d), oral
     Route: 048
  5. ARIPIPRAZOLE [Concomitant]
  6. PAROXETINE HYDROCHLORIDE [Concomitant]
  7. ESTROGENS CONJUGATED [Concomitant]
  8. LEVOTHYROXINE SODIUM [Concomitant]
  9. AMPHETAMINE ASPARTATE; AMPHETAMINE SULFATE; DEXTROAMPHETAMINE SACCHARATE; DEXTROAMPHETAMINE SULFATE [Concomitant]
  10. LOSARTAN [Concomitant]
  11. MODAFINIL [Concomitant]
  12. VALACYCLOVIR HYDROCHLORIDE [Concomitant]

REACTIONS (8)
  - Skin neoplasm excision [None]
  - Parasomnia [None]
  - Head injury [None]
  - Fatigue [None]
  - Hallucination, visual [None]
  - Disorientation [None]
  - Joint injury [None]
  - Fall [None]
